FAERS Safety Report 24336087 (Version 1)
Quarter: 2024Q3

REPORT INFORMATION
  Report Type: Spontaneous
  Country: CN (occurrence: CN)
  Receive Date: 20240919
  Receipt Date: 20240919
  Transmission Date: 20241017
  Serious: No
  Sender: ROCHE
  Company Number: CN-ROCHE-3503444

PATIENT
  Age: 45 Year
  Sex: Female

DRUGS (2)
  1. TAMIFLU [Suspect]
     Active Substance: OSELTAMIVIR PHOSPHATE
     Indication: Influenza like illness
     Route: 048
     Dates: start: 20240130
  2. TAMIFLU [Suspect]
     Active Substance: OSELTAMIVIR PHOSPHATE
     Dosage: DF=CAPSULE
     Route: 048

REACTIONS (2)
  - Intentional product misuse [Unknown]
  - No adverse event [Unknown]
